FAERS Safety Report 18141264 (Version 6)
Quarter: 2021Q4

REPORT INFORMATION
  Report Type: Spontaneous
  Country: US (occurrence: US)
  Receive Date: 20200812
  Receipt Date: 20211220
  Transmission Date: 20220303
  Serious: Yes (Hospitalization, Other)
  Sender: FDA-Public Use
  Company Number: US-GLAXOSMITHKLINE-US2020AMR155800

PATIENT
  Age: 63 Year
  Sex: Female

DRUGS (4)
  1. ZEJULA [Suspect]
     Active Substance: NIRAPARIB
     Indication: Fallopian tube cancer
     Dosage: 100 MG, QD
     Dates: start: 20200701
  2. ZEJULA [Suspect]
     Active Substance: NIRAPARIB
     Dosage: 100 MG, QD
     Dates: start: 20200710
  3. ZEJULA [Suspect]
     Active Substance: NIRAPARIB
     Dosage: 100 MG, QD
  4. ZEJULA [Suspect]
     Active Substance: NIRAPARIB
     Dosage: 100 MG, QD
     Route: 048

REACTIONS (12)
  - Vomiting [Not Recovered/Not Resolved]
  - Obstruction gastric [Not Recovered/Not Resolved]
  - Emotional disorder [Unknown]
  - Loss of personal independence in daily activities [Unknown]
  - Hernia [Not Recovered/Not Resolved]
  - Nausea [Not Recovered/Not Resolved]
  - Abdominal pain upper [Not Recovered/Not Resolved]
  - Hot flush [Unknown]
  - Fatigue [Unknown]
  - Product dose omission issue [Unknown]
  - Product dose omission in error [Unknown]
  - Off label use [Unknown]

NARRATIVE: CASE EVENT DATE: 20210220
